FAERS Safety Report 6930211-2 (Version None)
Quarter: 2010Q3

REPORT INFORMATION
  Report Type: 
  Country: None (occurrence: None)
  Receive Date: 20100817
  Receipt Date: 20100817
  Transmission Date: 20110219
  Serious: Yes (Hospitalization)
  Sender: FDA-Public Use
  Company Number: None

PATIENT
  Sex: Female
  Weight: 58.9676 kg

DRUGS (1)
  1. AMBIEN [Suspect]
     Indication: SLEEP DISORDER
     Dosage: LOWEST 1 TABLET AT BEDTIME
     Dates: start: 20030801, end: 20040315

REACTIONS (2)
  - HALLUCINATION, VISUAL [None]
  - VOMITING [None]
